FAERS Safety Report 4968338-7 (Version None)
Quarter: 2006Q2

REPORT INFORMATION
  Report Type: 
  Country: None (occurrence: None)
  Receive Date: 20060410
  Receipt Date: 20060223
  Transmission Date: 20061013
  Serious: Yes (Hospitalization)
  Sender: FDA-Public Use
  Company Number: GB-BRISTOL-MYERS SQUIBB COMPANY-13295522

PATIENT
  Age: 72 Year
  Sex: Female
  Weight: 74 kg

DRUGS (7)
  1. ABILIFY [Suspect]
     Indication: HALLUCINATION, AUDITORY
     Route: 048
     Dates: start: 20060112, end: 20060131
  2. STELAZINE [Concomitant]
     Indication: PSYCHOTIC DISORDER
     Route: 048
     Dates: start: 20051021, end: 20060109
  3. TRIMETHOPRIM [Concomitant]
     Indication: URINARY TRACT INFECTION
     Route: 048
     Dates: start: 20060127, end: 20060202
  4. PROCYCLIDINE HYDROCHLORIDE 2MG TAB [Concomitant]
     Indication: EXTRAPYRAMIDAL DISORDER
     Route: 048
     Dates: start: 20051010, end: 20060207
  5. OLANZAPINE [Concomitant]
     Indication: HALLUCINATION
     Route: 048
     Dates: start: 20050701, end: 20051001
  6. TEMAZEPAM [Concomitant]
     Indication: INSOMNIA
     Route: 048
     Dates: start: 20060101, end: 20060201
  7. TRIFLUOPERAZINE HCL [Concomitant]
     Indication: HALLUCINATION
     Route: 048
     Dates: start: 20060101, end: 20060101

REACTIONS (5)
  - INSOMNIA [None]
  - IRRITABILITY [None]
  - LOGORRHOEA [None]
  - MANIA [None]
  - PSYCHOMOTOR HYPERACTIVITY [None]
